FAERS Safety Report 23505853 (Version 1)
Quarter: 2024Q1

REPORT INFORMATION
  Report Type: Spontaneous
  Country: CN (occurrence: CN)
  Receive Date: 20240209
  Receipt Date: 20240209
  Transmission Date: 20240409
  Serious: Yes (Other)
  Sender: FDA-Public Use
  Company Number: CN-SHANGHAI JUNSHI BIOSCIENCES CO., LTD.-CN2024009255

PATIENT

DRUGS (4)
  1. TORIPALIMAB [Suspect]
     Active Substance: TORIPALIMAB
     Indication: Nasopharyngeal cancer
     Dosage: 240 MG (D0),Q3W
     Route: 041
     Dates: start: 20240111, end: 20240111
  2. PACLITAXEL [Suspect]
     Active Substance: PACLITAXEL
     Indication: Nasopharyngeal cancer
     Dosage: 180 MG (D1, D8), EVERY 3 WEEKS AS A CYCLE
     Route: 041
     Dates: start: 20240111, end: 20240112
  3. CISPLATIN [Suspect]
     Active Substance: CISPLATIN
     Indication: Nasopharyngeal cancer
     Dosage: 35 MG (D1), 30 MG (D2-D3), QD], EVERY 3 WEEKS
     Route: 041
     Dates: start: 20240111, end: 20240114
  4. CISPLATIN [Suspect]
     Active Substance: CISPLATIN
     Dosage: 30 MG (D2-D3), QD, EVERY 3 WEEKS AS A CYCLE
     Route: 041

REACTIONS (5)
  - Electrolyte imbalance [Recovering/Resolving]
  - Asthenia [Recovering/Resolving]
  - Nausea [Recovering/Resolving]
  - Mouth ulceration [Recovering/Resolving]
  - Decreased appetite [Recovering/Resolving]

NARRATIVE: CASE EVENT DATE: 20240114
